FAERS Safety Report 5523261-4 (Version None)
Quarter: 2007Q4

REPORT INFORMATION
  Report Type: 
  Country: None (occurrence: None)
  Receive Date: 20071119
  Receipt Date: 20071119
  Transmission Date: 20080405
  Serious: Yes (Other)
  Sender: FDA-Public Use
  Company Number: None

PATIENT
  Age: 41 Year
  Sex: Female
  Weight: 113.3993 kg

DRUGS (4)
  1. NORTRIPTYLINE HCL [Suspect]
     Indication: DEPRESSION
     Dosage: 1; 1 PER EVENING PO
     Route: 048
     Dates: start: 20071108, end: 20071118
  2. NORTRIPTYLINE HCL [Suspect]
     Indication: INSOMNIA
     Dosage: 1; 1 PER EVENING PO
     Route: 048
     Dates: start: 20071108, end: 20071118
  3. NORTRIPTYLINE HCL [Suspect]
     Indication: MIGRAINE
     Dosage: 1; 1 PER EVENING PO
     Route: 048
     Dates: start: 20071108, end: 20071118
  4. NORTRIPTYLINE HCL [Suspect]
     Indication: MUSCLE SPASMS
     Dosage: 1; 1 PER EVENING PO
     Route: 048
     Dates: start: 20071108, end: 20071118

REACTIONS (5)
  - DRUG INEFFECTIVE [None]
  - INSOMNIA [None]
  - MIGRAINE [None]
  - PAIN [None]
  - PHARMACEUTICAL PRODUCT COMPLAINT [None]
